FAERS Safety Report 14922459 (Version 2)
Quarter: 2018Q2

REPORT INFORMATION
  Report Type: Spontaneous
  Country: US (occurrence: US)
  Receive Date: 20180522
  Receipt Date: 20180525
  Transmission Date: 20180711
  Serious: No
  Sender: FDA-Public Use
  Company Number: US-PFIZER INC-2018204706

PATIENT
  Age: 74 Year
  Sex: Female

DRUGS (2)
  1. LYRICA [Suspect]
     Active Substance: PREGABALIN
     Dosage: 75 MG, ALTERNATE DAY (WAS STOPPING THE MEDICATION BY TAKING IT EVERY OTHER DAY)
     Dates: start: 2018, end: 201805
  2. LYRICA [Suspect]
     Active Substance: PREGABALIN
     Indication: NEUROPATHY PERIPHERAL
     Dosage: 75 MG, UNK
     Dates: start: 2018, end: 2018

REACTIONS (16)
  - Asthenia [Unknown]
  - Pain in extremity [Not Recovered/Not Resolved]
  - Balance disorder [Unknown]
  - Blister [Unknown]
  - Vision blurred [Unknown]
  - Somnolence [Unknown]
  - Weight decreased [Unknown]
  - Migraine [Unknown]
  - Back pain [Unknown]
  - Pain [Unknown]
  - Memory impairment [Unknown]
  - Fear [Unknown]
  - Diarrhoea [Unknown]
  - Oedema [Unknown]
  - Muscle atrophy [Unknown]
  - Hypoaesthesia [Not Recovered/Not Resolved]

NARRATIVE: CASE EVENT DATE: 2018
